FAERS Safety Report 9675934 (Version 5)
Quarter: 2013Q4

REPORT INFORMATION
  Report Type: Report from Study
  Country: FR (occurrence: FR)
  Receive Date: 20131107
  Receipt Date: 20131212
  Transmission Date: 20140711
  Serious: Yes (Hospitalization)
  Sender: FDA-Public Use
  Company Number: FR-VERTEX PHARMACEUTICALS INC-AE-2011-000845

PATIENT
  Age: 62 Year
  Sex: Male
  Weight: 63 kg

DRUGS (9)
  1. VX-950 (TELAPREVIR) [Suspect]
     Indication: HEPATITIS C
     Dosage: 750 MG, TID
     Route: 048
     Dates: start: 20110414, end: 20110624
  2. PEGASYS [Suspect]
     Indication: HEPATITIS C
     Dosage: 180 MG, QW
     Route: 058
     Dates: start: 20110317, end: 20110701
  3. COPEGUS [Concomitant]
     Indication: HEPATITIS C
     Dosage: 1600 MG, QD
     Dates: start: 20110317, end: 20110701
  4. COPEGUS [Concomitant]
     Dosage: 200 MG, BID
  5. TRAMADOL [Concomitant]
     Indication: PAIN
     Dosage: DOSAGE FORM: UNSPECIFIED
     Dates: start: 20110421
  6. DAFALGAN [Concomitant]
     Indication: INFLUENZA
     Dosage: 1 G, TID
     Dates: start: 20110317
  7. LEVOTHYROX [Concomitant]
     Indication: PRODUCT USED FOR UNKNOWN INDICATION
     Dosage: 75 ?G, QD
  8. PROPRANOLOL [Concomitant]
     Indication: VARICOSE VEIN
     Dosage: 40 MG, QD
  9. NEORECORMON [Concomitant]
     Indication: ANAEMIA
     Dosage: 30000 IU, QW
     Dates: start: 20110507, end: 20110701

REACTIONS (8)
  - Pancytopenia [Unknown]
  - Portal hypertension [Unknown]
  - Gastric disorder [Unknown]
  - Decreased appetite [Unknown]
  - Dysphonia [Unknown]
  - Weight decreased [Unknown]
  - Urinary tract infection [Unknown]
  - Lung disorder [Recovered/Resolved]
